FAERS Safety Report 23673697 (Version 1)
Quarter: 2024Q1

REPORT INFORMATION
  Report Type: Spontaneous
  Country: GB (occurrence: GB)
  Receive Date: 20240326
  Receipt Date: 20240326
  Transmission Date: 20240410
  Serious: Yes (Disabling)
  Sender: FDA-Public Use
  Company Number: None

PATIENT
  Age: 85 Year
  Sex: Male
  Weight: 82 kg

DRUGS (12)
  1. RAMIPRIL [Suspect]
     Active Substance: RAMIPRIL
     Indication: Ill-defined disorder
     Dosage: 2.5 MG
     Dates: start: 20230530
  2. TAMSULOSIN HYDROCHLORIDE [Suspect]
     Active Substance: TAMSULOSIN HYDROCHLORIDE
     Indication: Product used for unknown indication
     Dosage: 2.5 MG, QD; TAKE ONE DAILY
     Dates: start: 20230307, end: 20230615
  3. ASPIRIN [Concomitant]
     Active Substance: ASPIRIN
     Indication: Ill-defined disorder
     Dosage: 1 DF, QD (TAKE ONE DAILY WITH FOOD)
     Dates: start: 20220902
  4. ATORVASTATIN [Concomitant]
     Active Substance: ATORVASTATIN
     Indication: Ill-defined disorder
     Dosage: 1 DF, HS (TAKE ONE DAILY AT NIGHT)
     Dates: start: 20220902
  5. BECLOMETHASONE\FORMOTEROL [Concomitant]
     Active Substance: BECLOMETHASONE\FORMOTEROL
     Indication: Ill-defined disorder
     Dosage: 1 DF, BID (ONE PUFF TWICE DAILY)
     Dates: start: 20221202
  6. MOMETASONE [Concomitant]
     Active Substance: MOMETASONE
     Indication: Ill-defined disorder
     Dosage: UNK, QD (ONE TO TWO SQUIRTS TO EACH NOSTRIL ONCE DAILY)
     Route: 045
     Dates: start: 20220902
  7. PHENOBARBITAL [Concomitant]
     Active Substance: PHENOBARBITAL
     Indication: Ill-defined disorder
     Dosage: 1 DF, HS (TAKE ONE AT NIGHT)
     Dates: start: 20220902
  8. RAMIPRIL [Concomitant]
     Active Substance: RAMIPRIL
     Indication: Ill-defined disorder
     Dosage: 1 DF, QD (TAKE ONE DAILY)
     Dates: start: 20230307, end: 20230615
  9. SUNVITE D3 [Concomitant]
     Indication: Ill-defined disorder
     Dosage: 1 DF, QD (ONE DAILY ONCE HIGH DOSE REPLACEMENT HAS FINISHED)
     Dates: start: 20220902, end: 20230427
  10. TAMSULOSIN HYDROCHLORIDE [Concomitant]
     Active Substance: TAMSULOSIN HYDROCHLORIDE
     Indication: Ill-defined disorder
     Dosage: 1 DF, QD (TAKE ONE DAILY)
     Dates: start: 20220902
  11. ACETAMINOPHEN\BENZALKONIUM\DICHLORALPHENAZONE\DIMETHICONE\HYDROCORTISO [Concomitant]
     Active Substance: ACETAMINOPHEN\BENZALKONIUM\DICHLORALPHENAZONE\DIMETHICONE\HYDROCORTISONE\ISOMETHEPTENE\NYSTATIN
     Indication: Ill-defined disorder
     Dosage: UNK , BID (APPLY TWICE A DAY TO AFFECTED AREA)
     Dates: start: 20220902
  12. DIMETHICONE 350 [Concomitant]
     Active Substance: DIMETHICONE 350
     Indication: Product used for unknown indication
     Dosage: UNK

REACTIONS (3)
  - Cognitive disorder [Recovered/Resolved]
  - Sleep disorder [Recovered/Resolved]
  - Feeling drunk [Recovered/Resolved]

NARRATIVE: CASE EVENT DATE: 20230531
